FAERS Safety Report 17085577 (Version 1)
Quarter: 2019Q4

REPORT INFORMATION
  Report Type: Other
  Country: IT (occurrence: IT)
  Receive Date: 20191128
  Receipt Date: 20191128
  Transmission Date: 20200122
  Serious: Yes (Hospitalization, Other)
  Sender: FDA-Public Use
  Company Number: IT-MACLEODS PHARMACEUTICALS US LTD-MAC2019023948

PATIENT

DRUGS (1)
  1. PANTOPRAZOLE TABLET [Suspect]
     Active Substance: PANTOPRAZOLE
     Indication: GASTROOESOPHAGEAL REFLUX DISEASE
     Dosage: 1 DOSAGE FORM, QD, AS NECESSARY
     Route: 048

REACTIONS (3)
  - Neuralgia [Recovered/Resolved]
  - Anaemia [Recovered/Resolved]
  - Pain in extremity [Recovered/Resolved]
